FAERS Safety Report 6905419-2 (Version None)
Quarter: 2010Q3

REPORT INFORMATION
  Report Type: 
  Country: None (occurrence: None)
  Receive Date: 20100804
  Receipt Date: 20100723
  Transmission Date: 20110219
  Serious: Yes (Death, Hospitalization)
  Sender: FDA-Public Use
  Company Number: JP-SANOFI-AVENTIS-2010SA040981

PATIENT
  Age: 76 Year
  Sex: Male

DRUGS (14)
  1. RIFAMPICIN [Suspect]
     Indication: TUBERCULOUS PLEURISY
     Route: 048
     Dates: start: 20100210, end: 20100325
  2. ISCOTIN [Interacting]
     Indication: TUBERCULOUS PLEURISY
     Route: 048
     Dates: start: 20100210, end: 20100325
  3. PYRAMIDE [Interacting]
     Indication: TUBERCULOUS PLEURISY
     Route: 048
     Dates: start: 20100210, end: 20100325
  4. BASEN [Interacting]
     Indication: DIABETES MELLITUS
     Route: 048
     Dates: start: 20091001, end: 20100325
  5. ESANBUTOL [Concomitant]
     Indication: TUBERCULOUS PLEURISY
     Route: 048
  6. ZYLORIC ^FRESENIUS^ [Concomitant]
     Route: 048
  7. LOXONIN [Concomitant]
     Indication: PYREXIA
     Route: 048
     Dates: start: 20100201, end: 20100325
  8. LOXONIN [Concomitant]
     Indication: PAIN
     Route: 048
     Dates: start: 20100201, end: 20100325
  9. MUCOSTA [Concomitant]
     Indication: PYREXIA
     Route: 048
     Dates: start: 20100201, end: 20100325
  10. MUCOSTA [Concomitant]
     Indication: PAIN
     Route: 048
     Dates: start: 20100201, end: 20100325
  11. MAGNESIUM OXIDE [Concomitant]
     Indication: CONSTIPATION
     Route: 048
     Dates: start: 20100224, end: 20100325
  12. PYDOXAL [Concomitant]
     Indication: TUBERCULOUS PLEURISY
     Route: 048
     Dates: start: 20100210, end: 20100325
  13. GASTER D [Concomitant]
     Indication: GASTRITIS
     Route: 048
     Dates: start: 20100211, end: 20100325
  14. LASIX [Concomitant]
     Indication: CARDIAC FAILURE
     Route: 048
     Dates: start: 20100131, end: 20100325

REACTIONS (1)
  - HEPATITIS FULMINANT [None]
